FAERS Safety Report 25863076 (Version 1)
Quarter: 2025Q3

REPORT INFORMATION
  Report Type: Spontaneous
  Country: JP (occurrence: JP)
  Receive Date: 20250930
  Receipt Date: 20250930
  Transmission Date: 20251020
  Serious: Yes (Other)
  Sender: ALEXION PHARMACEUTICALS
  Company Number: JP-ASTRAZENECA-202509JPN022420JP

PATIENT
  Age: 66 Year
  Sex: Male

DRUGS (2)
  1. TAGRISSO [Suspect]
     Active Substance: OSIMERTINIB
     Indication: Non-small cell lung cancer
  2. TAGRISSO [Suspect]
     Active Substance: OSIMERTINIB

REACTIONS (2)
  - Arrhythmia [Unknown]
  - Stomatitis [Unknown]
